FAERS Safety Report 8152274-1 (Version None)
Quarter: 2012Q1

REPORT INFORMATION
  Report Type: 
  Country: None (occurrence: None)
  Receive Date: 20120221
  Receipt Date: 20120216
  Transmission Date: 20120608
  Serious: No
  Sender: FDA-Public Use
  Company Number: US-PFIZER INC-2012042572

PATIENT
  Sex: Female

DRUGS (3)
  1. ESTROGENS CONJUGATED [Suspect]
     Indication: MENOPAUSE
     Dosage: 0.5 MG, 1X/DAY
     Route: 048
     Dates: start: 20120208, end: 20120216
  2. IBUPROFEN [Concomitant]
     Dosage: 800 MG, UNK
  3. PREMARIN [Suspect]
     Indication: MENOPAUSE
     Dosage: 0.3 MG, 1X/DAY
     Route: 048
     Dates: start: 20111212, end: 20111214

REACTIONS (3)
  - CRYING [None]
  - INSOMNIA [None]
  - HYPERHIDROSIS [None]
